FAERS Safety Report 10360909 (Version 1)
Quarter: 2014Q3

REPORT INFORMATION
  Report Type: Spontaneous
  Country: FR (occurrence: FR)
  Receive Date: 20140804
  Receipt Date: 20140804
  Transmission Date: 20150326
  Serious: Yes (Hospitalization)
  Sender: FDA-Public Use
  Company Number: FR-BRISTOL-MYERS SQUIBB COMPANY-21240841

PATIENT
  Age: 62 Year
  Sex: Male

DRUGS (8)
  1. IMATINIB MESILATE [Concomitant]
     Active Substance: IMATINIB MESYLATE
  2. KARDEGIC [Concomitant]
     Active Substance: ASPIRIN LYSINE
  3. PLAVIX [Concomitant]
     Active Substance: CLOPIDOGREL BISULFATE
  4. CARDENSIEL [Concomitant]
     Active Substance: BISOPROLOL FUMARATE
  5. HYDREA [Suspect]
     Active Substance: HYDROXYUREA
     Indication: MYELOPROLIFERATIVE DISORDER
     Dosage: DOSE REDUCED TO 1/D
     Dates: start: 20131107
  6. COUMADINE [Concomitant]
     Active Substance: WARFARIN SODIUM
  7. CRESTOR [Concomitant]
     Active Substance: ROSUVASTATIN CALCIUM
  8. STAGID [Concomitant]
     Active Substance: METFORMIN PAMOATE

REACTIONS (2)
  - Legionella infection [Recovering/Resolving]
  - Lung disorder [Recovering/Resolving]

NARRATIVE: CASE EVENT DATE: 20140308
